FAERS Safety Report 9419762 (Version 1)
Quarter: 2013Q3

REPORT INFORMATION
  Report Type: Spontaneous
  Country: US (occurrence: US)
  Receive Date: 20130725
  Receipt Date: 20130725
  Transmission Date: 20140515
  Serious: No
  Sender: FDA-Public Use
  Company Number: US-US-EMD SERONO, INC.-7112488

PATIENT
  Age: 46 Year
  Sex: Female
  Weight: 73 kg

DRUGS (4)
  1. REBIF [Suspect]
     Indication: MULTIPLE SCLEROSIS
     Route: 058
     Dates: start: 20060907
  2. ALPRAZOLAM [Concomitant]
     Indication: MULTIPLE SCLEROSIS
  3. TIZANIDINE [Concomitant]
     Indication: MULTIPLE SCLEROSIS
  4. SUMATRIPTAN [Concomitant]
     Indication: MIGRAINE

REACTIONS (3)
  - Vascular injury [Recovering/Resolving]
  - Injection site bruising [Unknown]
  - Injection site erythema [Unknown]
